FAERS Safety Report 5703701-8 (Version None)
Quarter: 2008Q2

REPORT INFORMATION
  Report Type: 
  Country: None (occurrence: None)
  Receive Date: 20080413
  Receipt Date: 20080404
  Transmission Date: 20081010
  Serious: Yes (Other)
  Sender: FDA-Public Use
  Company Number: PHBS2008CA03898

PATIENT
  Age: 56 Year
  Sex: Female

DRUGS (2)
  1. PAMIDRONATE DISODIUM [Suspect]
     Indication: OSTEOPOROSIS
  2. ZOLEDRONIC ACID [Suspect]
     Indication: OSTEOPOROSIS

REACTIONS (5)
  - BONE DEBRIDEMENT [None]
  - BONE DISORDER [None]
  - OSTEONECROSIS [None]
  - PURULENCE [None]
  - TOOTH EXTRACTION [None]
